FAERS Safety Report 10961037 (Version 2)
Quarter: 2015Q2

REPORT INFORMATION
  Report Type: Spontaneous
  Country: IT (occurrence: IT)
  Receive Date: 20150327
  Receipt Date: 20150414
  Transmission Date: 20150821
  Serious: Yes (Other)
  Sender: FDA-Public Use
  Company Number: IT-WATSON-2015-06354

PATIENT
  Age: 16 Year
  Sex: Male

DRUGS (2)
  1. MIRTAZAPINE (UNKNOWN) [Suspect]
     Active Substance: MIRTAZAPINE
     Indication: MAJOR DEPRESSION
     Dosage: 30 MG, DAILY
     Route: 048
     Dates: start: 20140607, end: 20140613
  2. DEPAKENE [Concomitant]
     Active Substance: VALPROIC ACID
     Indication: PRODUCT USED FOR UNKNOWN INDICATION
     Dosage: 600 MG, UNKNOWN
     Route: 048
     Dates: start: 20140606, end: 20140613

REACTIONS (3)
  - Drug ineffective [Unknown]
  - Suicidal ideation [Unknown]
  - Depressed mood [Unknown]

NARRATIVE: CASE EVENT DATE: 20140613
